FAERS Safety Report 8839895 (Version 1)
Quarter: 2012Q4

REPORT INFORMATION
  Report Type: 
  Country: MX (occurrence: MX)
  Receive Date: 20121015
  Receipt Date: 20121015
  Transmission Date: 20130627
  Serious: Yes (Hospitalization)
  Sender: FDA-Public Use
  Company Number: PHHY2012MX091167

PATIENT
  Age: 48 Year
  Sex: Male

DRUGS (1)
  1. EXFORGE [Suspect]
     Dosage: 1 DF, (160/10 mg) per day
     Dates: start: 20111208

REACTIONS (1)
  - Gastrointestinal disorder [Recovered/Resolved]
